FAERS Safety Report 5572310-6 (Version None)
Quarter: 2007Q4

REPORT INFORMATION
  Report Type: 
  Country: None (occurrence: None)
  Receive Date: 20071221
  Receipt Date: 20071212
  Transmission Date: 20080405
  Serious: Yes (Other)
  Sender: FDA-Public Use
  Company Number: GB-PFIZER INC-2007105111

PATIENT
  Age: 52 Year
  Sex: Male
  Weight: 70.4 kg

DRUGS (5)
  1. CHANTIX [Suspect]
     Route: 048
     Dates: start: 20071121, end: 20071127
  2. BUPRENORPHINE HCL [Concomitant]
  3. ALBUTEROL [Concomitant]
     Route: 055
  4. SERETIDE [Concomitant]
     Route: 055
  5. TIOTROPIUM BROMIDE [Concomitant]
     Route: 055

REACTIONS (8)
  - ANOREXIA [None]
  - DYSURIA [None]
  - HEADACHE [None]
  - POLLAKIURIA [None]
  - THIRST [None]
  - TINNITUS [None]
  - VISUAL DISTURBANCE [None]
  - VOMITING [None]
